FAERS Safety Report 11654926 (Version 2)
Quarter: 2016Q1

REPORT INFORMATION
  Report Type: Spontaneous
  Country: US (occurrence: US)
  Receive Date: 20151023
  Receipt Date: 20160119
  Transmission Date: 20160525
  Serious: Yes (Other)
  Sender: FDA-Public Use
  Company Number: US-PFIZER INC-2015353263

PATIENT
  Age: 55 Year
  Sex: Male
  Weight: 115.65 kg

DRUGS (3)
  1. CHANTIX [Suspect]
     Active Substance: VARENICLINE TARTRATE
     Indication: SMOKING CESSATION THERAPY
     Dosage: 1 MG, UNK
     Route: 048
  2. BABY ASPIRIN [Concomitant]
     Active Substance: ASPIRIN
     Dosage: 1 DF, DAILY
  3. CHANTIX [Suspect]
     Active Substance: VARENICLINE TARTRATE
     Dosage: 2 MG, UNK
     Route: 048

REACTIONS (5)
  - Insomnia [Unknown]
  - Agitation [Unknown]
  - Suicidal ideation [Unknown]
  - Mental disorder [Unknown]
  - Suicidal behaviour [Unknown]

NARRATIVE: CASE EVENT DATE: 2013
